FAERS Safety Report 8296520-2 (Version None)
Quarter: 2012Q2

REPORT INFORMATION
  Report Type: 
  Country: None (occurrence: None)
  Receive Date: 20120418
  Receipt Date: 20120417
  Transmission Date: 20120825
  Serious: No
  Sender: FDA-Public Use
  Company Number: US-PFIZER INC-2012095384

PATIENT
  Sex: Female
  Weight: 95.2 kg

DRUGS (3)
  1. CELEBREX [Concomitant]
     Indication: MUSCULOSKELETAL DISCOMFORT
     Dosage: 200 MG, DAILY
     Route: 048
  2. LASIX [Concomitant]
     Indication: FLUID RETENTION
     Dosage: 5 MG, 3X/WEEK
     Route: 048
  3. LYRICA [Suspect]
     Indication: ARTHRITIS
     Dosage: 75 MG, 2X/DAY
     Route: 048
     Dates: start: 20120409, end: 20120416

REACTIONS (2)
  - JOINT SWELLING [None]
  - DRY MOUTH [None]
